FAERS Safety Report 18652225 (Version 1)
Quarter: 2020Q4

REPORT INFORMATION
  Report Type: Spontaneous
  Country: US (occurrence: US)
  Receive Date: 20201222
  Receipt Date: 20201222
  Transmission Date: 20210114
  Serious: Yes (Hospitalization, Other)
  Sender: FDA-Public Use
  Company Number: US-ELI_LILLY_AND_COMPANY-US202012007484

PATIENT
  Age: 60 Year
  Sex: Female
  Weight: 65.76 kg

DRUGS (1)
  1. BAMLANIVIMAB 700MG [Suspect]
     Active Substance: BAMLANIVIMAB
     Indication: COVID-19
     Dosage: 700 MG, SINGLE
     Route: 042
     Dates: start: 20201202, end: 20201202

REACTIONS (9)
  - Chronic obstructive pulmonary disease [Unknown]
  - Anxiety [Unknown]
  - Dizziness [Unknown]
  - Hypokalaemia [Unknown]
  - Hypotension [Unknown]
  - Asthenia [Unknown]
  - Hypertension [Unknown]
  - COVID-19 pneumonia [Unknown]
  - Asthma [Unknown]

NARRATIVE: CASE EVENT DATE: 20201202
